FAERS Safety Report 5907326-0 (Version None)
Quarter: 2008Q4

REPORT INFORMATION
  Report Type: 
  Country: None (occurrence: None)
  Receive Date: 20081003
  Receipt Date: 20080925
  Transmission Date: 20090506
  Serious: Yes (Other)
  Sender: FDA-Public Use
  Company Number: CA-ABBOTT-08P-028-0476883-00

PATIENT
  Sex: Male
  Weight: 108 kg

DRUGS (3)
  1. HUMIRA [Suspect]
     Indication: PSORIASIS
     Route: 058
     Dates: start: 20080219, end: 20080618
  2. IRBESARTAN AND HYDROCHLOROTHIAZIDE [Concomitant]
     Indication: HYPERTENSION
     Route: 048
     Dates: start: 20070215
  3. ATENOLOL [Concomitant]
     Indication: HYPERTENSION
     Dates: start: 20080520

REACTIONS (1)
  - RENAL VASCULITIS [None]
